FAERS Safety Report 23232072 (Version 1)
Quarter: 2023Q4

REPORT INFORMATION
  Report Type: Spontaneous
  Country: US (occurrence: None)
  Receive Date: 20231127
  Receipt Date: 20231127
  Transmission Date: 20240110
  Serious: No
  Sender: FDA-Public Use
  Company Number: None

PATIENT
  Age: 43 Year
  Sex: Female

DRUGS (4)
  1. SUTENT [Suspect]
     Active Substance: SUNITINIB MALATE
     Indication: Gastrointestinal stromal tumour
     Dosage: FREQUENCY : DAILY;?
     Route: 048
     Dates: start: 202303
  2. GASTROINTESTINAL NEOPLASM [Concomitant]
  3. CHRONIC PAIN [Concomitant]
  4. HYPERLIPIDEMIA [Concomitant]

REACTIONS (3)
  - Fatigue [None]
  - Pain in extremity [None]
  - Dry skin [None]

NARRATIVE: CASE EVENT DATE: 20231115
